FAERS Safety Report 23824932 (Version 4)
Quarter: 2024Q3

REPORT INFORMATION
  Report Type: Spontaneous
  Country: US (occurrence: US)
  Receive Date: 20240507
  Receipt Date: 20240724
  Transmission Date: 20241016
  Serious: No
  Sender: LUPIN
  Company Number: US-LUPIN PHARMACEUTICALS INC.-2024-03662

PATIENT

DRUGS (2)
  1. ALBUTEROL SULFATE [Suspect]
     Active Substance: ALBUTEROL SULFATE
     Indication: Asthma
     Dosage: UNK UNK, PRN
     Dates: start: 20240425
  2. ALBUTEROL SULFATE [Suspect]
     Active Substance: ALBUTEROL SULFATE
     Dosage: UNK, PRN

REACTIONS (7)
  - Drug dose omission by device [Unknown]
  - Product packaging quantity issue [Unknown]
  - Product lot number issue [Unknown]
  - Product expiration date issue [Unknown]
  - Device deposit issue [Unknown]
  - Device delivery system issue [Unknown]
  - No adverse event [Unknown]
